FAERS Safety Report 23460776 (Version 3)
Quarter: 2024Q1

REPORT INFORMATION
  Report Type: Spontaneous
  Country: PT (occurrence: PT)
  Receive Date: 20240131
  Receipt Date: 20240304
  Transmission Date: 20240410
  Serious: Yes (Other)
  Sender: FDA-Public Use
  Company Number: PT-TEVA-VS-3144241

PATIENT
  Age: 55 Year
  Sex: Female

DRUGS (8)
  1. LETROZOLE [Interacting]
     Active Substance: LETROZOLE
     Indication: Breast cancer metastatic
     Dosage: UNK
     Route: 065
     Dates: end: 202011
  2. LETROZOLE [Interacting]
     Active Substance: LETROZOLE
     Indication: Metastases to pelvis
     Dosage: UNK
     Route: 065
  3. ZOLEDRONIC ACID [Suspect]
     Active Substance: ZOLEDRONIC ACID
     Indication: Breast cancer metastatic
     Dosage: UNK
     Route: 065
     Dates: end: 202011
  4. ZOLEDRONIC ACID [Suspect]
     Active Substance: ZOLEDRONIC ACID
     Indication: Metastases to pelvis
     Dosage: UNK
     Route: 065
  5. RIBOCICLIB [Interacting]
     Active Substance: RIBOCICLIB
     Indication: Breast cancer metastatic
     Dosage: UNKNOWN INITIAL DOSE
     Route: 065
     Dates: start: 202011
  6. RIBOCICLIB [Interacting]
     Active Substance: RIBOCICLIB
     Indication: Metastases to pelvis
     Dosage: 400 MILLIGRAM, QD
     Route: 065
     Dates: end: 202011
  7. TAMOXIFEN [Concomitant]
     Active Substance: TAMOXIFEN
     Indication: Product used for unknown indication
     Dosage: UNK
     Route: 065
  8. FULVESTRANT [Concomitant]
     Active Substance: FULVESTRANT
     Indication: Product used for unknown indication
     Dosage: UNK
     Route: 065

REACTIONS (4)
  - Drug-induced liver injury [Unknown]
  - Vitiligo [Unknown]
  - Drug interaction [Unknown]
  - Off label use [Unknown]

NARRATIVE: CASE EVENT DATE: 20201101
